FAERS Safety Report 6681645-5 (Version None)
Quarter: 2010Q2

REPORT INFORMATION
  Report Type: 
  Country: None (occurrence: None)
  Receive Date: 20100413
  Receipt Date: 20100413
  Transmission Date: 20101027
  Serious: Yes (Disabling)
  Sender: FDA-Public Use
  Company Number: None

PATIENT
  Age: 50 Year
  Sex: Male
  Weight: 83.9154 kg

DRUGS (1)
  1. LEVAQUIN [Suspect]
     Indication: PNEUMONIA
     Dosage: 1 TABLET DAILY PO
     Route: 048
     Dates: start: 20100202, end: 20100209

REACTIONS (6)
  - ARTHRALGIA [None]
  - HYPOAESTHESIA [None]
  - RETINAL TEAR [None]
  - TENDON RUPTURE [None]
  - VISUAL IMPAIRMENT [None]
  - VITREOUS FLOATERS [None]
